FAERS Safety Report 18746322 (Version 1)
Quarter: 2021Q1

REPORT INFORMATION
  Report Type: Spontaneous
  Country: FR (occurrence: FR)
  Receive Date: 20210115
  Receipt Date: 20210115
  Transmission Date: 20210419
  Serious: Yes (Death)
  Sender: FDA-Public Use
  Company Number: FR-TEVA-2021-FR-1868547

PATIENT
  Age: 39 Year
  Sex: Male

DRUGS (5)
  1. METHADONE [Suspect]
     Active Substance: METHADONE HYDROCHLORIDE
     Indication: INTENTIONAL PRODUCT MISUSE
     Dosage: UNKNOWN
     Route: 065
     Dates: end: 2019
  2. OXAZEPAM. [Suspect]
     Active Substance: OXAZEPAM
     Dosage: UNKNOWN
     Route: 065
     Dates: end: 2019
  3. CYAMEMAZINE [Suspect]
     Active Substance: CYAMEMAZINE
     Dosage: UNKNOWN
     Route: 065
     Dates: end: 2019
  4. OLANZAPINE. [Suspect]
     Active Substance: OLANZAPINE
     Dosage: UNKNOWN
     Route: 065
     Dates: end: 2019
  5. LORMETAZEPAM [Suspect]
     Active Substance: LORMETAZEPAM
     Dosage: UNKNOWN
     Route: 065
     Dates: end: 2019

REACTIONS (4)
  - Drug abuse [Fatal]
  - Cardiac failure acute [Fatal]
  - Respiratory failure [Fatal]
  - Depressed level of consciousness [Fatal]
